FAERS Safety Report 10802796 (Version 3)
Quarter: 2015Q2

REPORT INFORMATION
  Report Type: Spontaneous
  Country: US (occurrence: US)
  Receive Date: 20150217
  Receipt Date: 20150625
  Transmission Date: 20150821
  Serious: Yes (Hospitalization, Other)
  Sender: FDA-Public Use
  Company Number: US-PFIZER INC-2015056556

PATIENT
  Age: 81 Year
  Sex: Male
  Weight: 95 kg

DRUGS (21)
  1. EPITOL [Concomitant]
     Active Substance: CARBAMAZEPINE
     Indication: NEUROPATHY PERIPHERAL
     Dosage: 200 MG, 3X/DAY
     Dates: start: 1994
  2. OMEPRAZOLE. [Concomitant]
     Active Substance: OMEPRAZOLE
     Indication: GASTRIC DISORDER
     Dosage: 40 MG, DAILY
     Dates: start: 2010
  3. SERTRALINE [Concomitant]
     Active Substance: SERTRALINE HYDROCHLORIDE
     Dosage: 50 MG, DAILY
     Dates: start: 2012
  4. DIAZEPAM. [Concomitant]
     Active Substance: DIAZEPAM
     Indication: NEUROPATHY PERIPHERAL
     Dosage: 2.5 MG, 2X/DAY
     Dates: start: 2014
  5. PRAMIPEXOLE [Concomitant]
     Active Substance: PRAMIPEXOLE
     Indication: RESTLESS LEGS SYNDROME
     Dosage: 0.25 MG, UNK
     Dates: start: 2013
  6. BETHANECHOL [Concomitant]
     Active Substance: BETHANECHOL
     Indication: BLADDER DISORDER
     Dosage: 25 MG, 3X/DAY
     Dates: start: 2003
  7. VITAMIN D [Concomitant]
     Active Substance: CHOLECALCIFEROL
     Dosage: UNK
     Dates: start: 2014
  8. LYRICA [Suspect]
     Active Substance: PREGABALIN
     Dosage: 20 MG, 2X/DAY
     Route: 048
     Dates: start: 201405
  9. ATORVASTATIN [Concomitant]
     Active Substance: ATORVASTATIN
     Dosage: 10 MG, DAILY
     Dates: start: 2014
  10. BENADRYL [Concomitant]
     Active Substance: DIPHENHYDRAMINE HYDROCHLORIDE
     Indication: SINUS DISORDER
     Dosage: AS NEEDED AT NIGHT
     Dates: start: 2014
  11. LOSARTAN [Concomitant]
     Active Substance: LOSARTAN
     Indication: BLOOD CHOLESTEROL INCREASED
     Dosage: 100 MG, DAILY
     Dates: start: 2014
  12. MELATONIN [Concomitant]
     Active Substance: MELATONIN
     Indication: SLEEP DISORDER
     Dosage: UNK
     Dates: start: 2010
  13. GAS-X [Concomitant]
     Active Substance: DIMETHICONE
     Dosage: UNK, AS NEEDED
     Dates: start: 2014
  14. PREDNISONE. [Concomitant]
     Active Substance: PREDNISONE
     Indication: PAIN
     Dosage: 5 MG, DAILY
     Dates: start: 2012
  15. IRON [Concomitant]
     Active Substance: IRON
     Indication: ASTHENIA
     Dosage: 5 MG, DAILY
     Dates: start: 2014
  16. PROBIOTICS [Concomitant]
     Active Substance: PROBIOTICS NOS
     Indication: LARGE INTESTINE POLYP
     Dosage: UNK
     Dates: start: 2014
  17. CHLORTHALIDONE. [Concomitant]
     Active Substance: CHLORTHALIDONE
     Indication: HYPERTENSION
     Dosage: 25 MG, DAILY
     Dates: start: 2010
  18. OSTEO BI-FLEX [Concomitant]
     Active Substance: CHONDROITIN SULFATE A\GLUCOSAMINE
     Indication: ARTHRALGIA
     Dosage: UNK
     Dates: start: 2010
  19. LYRICA [Suspect]
     Active Substance: PREGABALIN
     Indication: PAIN
     Dosage: 50 MG, 2X/DAY
     Route: 048
     Dates: start: 2014
  20. HYDROCODONE/ACETAMINOPHEN [Concomitant]
     Active Substance: ACETAMINOPHEN\HYDROCODONE
     Indication: PAIN
     Dosage: 7.5 MG, 2X/DAY
     Dates: start: 2013
  21. RANITIDINE [Concomitant]
     Active Substance: RANITIDINE\RANITIDINE HYDROCHLORIDE
     Indication: GASTRIC DISORDER
     Dosage: 150 MG 2 AT NIGHT
     Dates: start: 2009

REACTIONS (5)
  - Diverticulum intestinal haemorrhagic [Recovered/Resolved]
  - Drug ineffective [Not Recovered/Not Resolved]
  - Nephrolithiasis [Unknown]
  - Arthralgia [Unknown]
  - Gait disturbance [Not Recovered/Not Resolved]

NARRATIVE: CASE EVENT DATE: 201406
